FAERS Safety Report 6155089-9 (Version None)
Quarter: 2009Q2

REPORT INFORMATION
  Report Type: 
  Country: None (occurrence: None)
  Receive Date: 20090410
  Receipt Date: 20090402
  Transmission Date: 20091009
  Serious: Yes (Death)
  Sender: FDA-Public Use
  Company Number: GXKR2009GB04253

PATIENT

DRUGS (7)
  1. BUMETANIDE (NGX) (BUMETANIDE) UNKNOWN [Suspect]
  2. METOLAZONE (NGX) (METOLAZONE) UNKNOWN [Suspect]
  3. PERINDOPRIL (NGX) (PERINDOPRIL) UNKNOWN [Suspect]
  4. SPIRONOLACTONE [Suspect]
  5. TRIMETHOPRIM [Suspect]
  6. SANDOCAL (NCH) (CALCIUM GLUBIONATE) UNKNOWN [Suspect]
  7. POTASSIUM CHLORIDE [Suspect]

REACTIONS (3)
  - HYPERCALCAEMIA [None]
  - HYPERKALAEMIA [None]
  - RENAL FAILURE [None]
